FAERS Safety Report 24822526 (Version 3)
Quarter: 2025Q1

REPORT INFORMATION
  Report Type: Spontaneous
  Country: US (occurrence: US)
  Receive Date: 20250109
  Receipt Date: 20250217
  Transmission Date: 20250409
  Serious: Yes (Other)
  Sender: NOVO NORDISK
  Company Number: US-NOVOPROD-1345777

PATIENT
  Sex: Female

DRUGS (2)
  1. NOVOLIN 70/30 [Suspect]
     Active Substance: INSULIN HUMAN
     Indication: Type 2 diabetes mellitus
     Dosage: 40 U, BID
     Route: 058
     Dates: start: 2022
  2. NOVOLIN 70/30 [Suspect]
     Active Substance: INSULIN HUMAN
     Route: 058
     Dates: start: 2022

REACTIONS (2)
  - Glaucoma [Recovered/Resolved]
  - Blindness unilateral [Not Recovered/Not Resolved]
